FAERS Safety Report 7778194-X (Version None)
Quarter: 2011Q3

REPORT INFORMATION
  Report Type: 
  Country: None (occurrence: None)
  Receive Date: 20110926
  Receipt Date: 20110922
  Transmission Date: 20111222
  Serious: Yes (Hospitalization)
  Sender: FDA-Public Use
  Company Number: US-CEPHALON-2011004808

PATIENT
  Sex: Male
  Weight: 99 kg

DRUGS (2)
  1. TREANDA [Suspect]
     Indication: NON-HODGKIN'S LYMPHOMA
     Route: 041
     Dates: start: 20110419
  2. RITUXIMAB [Suspect]
     Indication: NON-HODGKIN'S LYMPHOMA
     Route: 042
     Dates: start: 20110419

REACTIONS (1)
  - BACTERAEMIA [None]
